FAERS Safety Report 23942597 (Version 1)
Quarter: 2024Q2

REPORT INFORMATION
  Report Type: Spontaneous
  Country: US (occurrence: None)
  Receive Date: 20240605
  Receipt Date: 20240605
  Transmission Date: 20240715
  Serious: Yes (Other)
  Sender: FDA-Public Use
  Company Number: 2024A124249

PATIENT
  Sex: Female

DRUGS (1)
  1. FARXIGA [Suspect]
     Active Substance: DAPAGLIFLOZIN PROPANEDIOL
     Indication: Chronic kidney disease
     Route: 048

REACTIONS (9)
  - Renal disorder [Unknown]
  - Dehydration [Unknown]
  - Blood urea abnormal [Unknown]
  - Blood creatinine increased [Unknown]
  - Glomerular filtration rate abnormal [Unknown]
  - Thirst [Unknown]
  - Dry skin [Unknown]
  - Dry mouth [Unknown]
  - Skin exfoliation [Unknown]
